FAERS Safety Report 24614698 (Version 2)
Quarter: 2024Q4

REPORT INFORMATION
  Report Type: Report from Study
  Country: CN (occurrence: CN)
  Receive Date: 20241113
  Receipt Date: 20241118
  Transmission Date: 20250115
  Serious: Yes (Hospitalization)
  Sender: AMGEN
  Company Number: CN-AMGEN-CHNNI2024220970

PATIENT
  Age: 57 Year
  Sex: Male
  Weight: 56 kg

DRUGS (6)
  1. DENOSUMAB [Suspect]
     Active Substance: DENOSUMAB
     Indication: Bone cancer metastatic
     Dosage: 120 MILLIGRAM, Q4WK
     Route: 058
     Dates: start: 20240803
  2. Calcium carbonate and vitamin d3 chewable tablet (iii) [Concomitant]
     Dosage: 300 MILLIGRAM
     Route: 048
     Dates: start: 20240726
  3. ICOTINIB HYDROCHLORIDE [Concomitant]
     Active Substance: ICOTINIB HYDROCHLORIDE
     Dosage: 125 MICROGRAM
     Dates: start: 202212
  4. OSIMERTINIB MESYLATE [Concomitant]
     Active Substance: OSIMERTINIB MESYLATE
     Dosage: 80 MICROGRAM
     Route: 048
  5. FIRMONERTINIB MESYLATE [Concomitant]
     Active Substance: FIRMONERTINIB MESYLATE
     Dosage: 80 MICROGRAM
     Route: 048
     Dates: start: 202407, end: 2024
  6. BEVACIZUMAB [Concomitant]
     Active Substance: BEVACIZUMAB
     Dosage: 382 MICROGRAM
     Route: 040
     Dates: start: 20240926, end: 20240926

REACTIONS (2)
  - Hyponatraemia [Not Recovered/Not Resolved]
  - Hypochloraemia [Recovered/Resolved]

NARRATIVE: CASE EVENT DATE: 20240918
